FAERS Safety Report 10682523 (Version 1)
Quarter: 2014Q4

REPORT INFORMATION
  Report Type: Spontaneous
  Country: IT (occurrence: None)
  Receive Date: 20141224
  Receipt Date: 20141224
  Transmission Date: 20150529
  Serious: Yes (Death, Other)
  Sender: FDA-Public Use
  Company Number: FK201406461

PATIENT

DRUGS (4)
  1. COTRIMOXAZOLE (BACTRIM) [Concomitant]
  2. ACICLOVIR [Concomitant]
     Active Substance: ACYCLOVIR
  3. FLUDARABINE [Suspect]
     Active Substance: FLUDARABINE PHOSPHATE
     Indication: CHRONIC LYMPHOCYTIC LEUKAEMIA
     Dosage: 30 MG/M2, 3 DAYS EVERY 4 WEEKS (6 CYCLES), ORAL
     Route: 048
  4. CYCLOPHOSPHAMIDE. [Suspect]
     Active Substance: CYCLOPHOSPHAMIDE
     Indication: CHRONIC LYMPHOCYTIC LEUKAEMIA
     Dosage: 250 MG/M2, 3 DAYS EVERY 4 WEEKS (6 CYCLES), ORAL
     Route: 048

REACTIONS (2)
  - Neutropenia [None]
  - Pneumonia [None]
